FAERS Safety Report 25729783 (Version 3)
Quarter: 2025Q4

REPORT INFORMATION
  Report Type: Spontaneous
  Country: JP (occurrence: JP)
  Receive Date: 20250827
  Receipt Date: 20251205
  Transmission Date: 20260117
  Serious: Yes (Hospitalization, Other)
  Sender: ALEXION PHARMACEUTICALS
  Company Number: JP-ASTRAZENECA-202508JPN018733JP

PATIENT
  Age: 81 Year
  Sex: Female
  Weight: 53.2 kg

DRUGS (11)
  1. TRUQAP [Suspect]
     Active Substance: CAPIVASERTIB
     Indication: Breast cancer recurrent
     Dosage: 320 MILLIGRAM, BID
     Dates: start: 20250807, end: 20250918
  2. FASLODEX [Suspect]
     Active Substance: FULVESTRANT
     Dosage: UNK
     Route: 065
  3. FASLODEX [Suspect]
     Active Substance: FULVESTRANT
  4. DEXTROMETHORPHAN HYDROBROMIDE [Suspect]
     Active Substance: DEXTROMETHORPHAN HYDROBROMIDE
     Indication: Metastases to lung
     Dosage: 15 MILLIGRAM, TID
     Dates: start: 20250806, end: 20250818
  5. HERBALS [Concomitant]
     Active Substance: HERBALS
     Dosage: 2.5 MILLIGRAM
     Route: 065
  6. CARBOCYSTEINE [Concomitant]
     Active Substance: CARBOCYSTEINE
     Dosage: 250 MILLIGRAM
     Route: 065
  7. REBAMIPIDE [Concomitant]
     Active Substance: REBAMIPIDE
     Dosage: 100 MILLIGRAM
     Route: 065
  8. VONOPRAZAN FUMARATE [Concomitant]
     Active Substance: VONOPRAZAN FUMARATE
     Dosage: 10 MILLIGRAM, QD
     Route: 065
  9. AMBROXOL HYDROCHLORIDE [Concomitant]
     Active Substance: AMBROXOL HYDROCHLORIDE
     Dosage: 15 MILLIGRAM
     Route: 065
  10. URSODIOL [Concomitant]
     Active Substance: URSODIOL
     Dosage: 100 MILLIGRAM
     Route: 065
  11. MAGNESIUM [Concomitant]
     Active Substance: MAGNESIUM
     Dosage: 330 MILLIGRAM
     Route: 065

REACTIONS (5)
  - Erythema multiforme [Unknown]
  - Drug eruption [Recovering/Resolving]
  - Pyrexia [Unknown]
  - C-reactive protein abnormal [Unknown]
  - Diarrhoea [Unknown]

NARRATIVE: CASE EVENT DATE: 20250816
